FAERS Safety Report 6699823-8 (Version None)
Quarter: 2010Q2

REPORT INFORMATION
  Report Type: 
  Country: None (occurrence: None)
  Receive Date: 20100428
  Receipt Date: 20100212
  Transmission Date: 20101027
  Serious: No
  Sender: FDA-Public Use
  Company Number: A0839771A

PATIENT
  Age: 19 Year
  Sex: Male

DRUGS (3)
  1. LUXIQ [Suspect]
     Indication: PSORIASIS
     Route: 065
  2. CAPEX [Suspect]
     Indication: PSORIASIS
  3. UNKNOWN MEDICATION [Concomitant]

REACTIONS (1)
  - DRUG INEFFECTIVE [None]
